FAERS Safety Report 13471001 (Version 2)
Quarter: 2017Q2

REPORT INFORMATION
  Report Type: Spontaneous
  Country: NL (occurrence: NL)
  Receive Date: 20170424
  Receipt Date: 20170505
  Transmission Date: 20170830
  Serious: Yes (Other)
  Sender: FDA-Public Use
  Company Number: NL-MERCK KGAA-1065741

PATIENT
  Age: 60 Year
  Sex: Female
  Weight: 60 kg

DRUGS (1)
  1. NOVOTHYROX [Suspect]
     Active Substance: LEVOTHYROXINE SODIUM
     Indication: AUTOIMMUNE THYROIDITIS
     Route: 048
     Dates: start: 20160625

REACTIONS (6)
  - Gastrooesophageal reflux disease [Recovered/Resolved]
  - Salivary gland enlargement [Unknown]
  - Saliva altered [Unknown]
  - Abdominal discomfort [Recovered/Resolved]
  - Chest pain [Unknown]
  - Dry mouth [Unknown]

NARRATIVE: CASE EVENT DATE: 20160901
